FAERS Safety Report 7788674-9 (Version None)
Quarter: 2011Q3

REPORT INFORMATION
  Report Type: 
  Country: None (occurrence: None)
  Receive Date: 20110930
  Receipt Date: 20110927
  Transmission Date: 20111222
  Serious: Yes (Hospitalization)
  Sender: FDA-Public Use
  Company Number: US-CEPHALON-2011005135

PATIENT
  Sex: Male
  Weight: 66 kg

DRUGS (4)
  1. TREANDA [Suspect]
     Indication: MULTIPLE MYELOMA
     Route: 041
     Dates: start: 20110813, end: 20110814
  2. LENALIDOMIDE [Suspect]
     Indication: MULTIPLE MYELOMA
     Dates: start: 20110813
  3. TREANDA [Suspect]
     Route: 041
     Dates: start: 20110912
  4. DEXAMETHASONE [Concomitant]
     Indication: MULTIPLE MYELOMA
     Dates: start: 20110813

REACTIONS (4)
  - PYREXIA [None]
  - MALAISE [None]
  - STAPHYLOCOCCAL INFECTION [None]
  - ORAL HERPES [None]
